FAERS Safety Report 9685172 (Version 2)
Quarter: 2013Q4

REPORT INFORMATION
  Report Type: Spontaneous
  Country: BR (occurrence: BR)
  Receive Date: 20131113
  Receipt Date: 20131122
  Transmission Date: 20140711
  Serious: Yes (Other)
  Sender: FDA-Public Use
  Company Number: BR-AMGEN-BRASP2013078876

PATIENT
  Age: 55 Year
  Sex: Female
  Weight: 80 kg

DRUGS (6)
  1. ENBREL [Suspect]
     Indication: RHEUMATOID ARTHRITIS
     Dosage: 50 MG, QWK
     Route: 065
     Dates: start: 2008
  2. ENBREL [Suspect]
     Dosage: 50 MG, QD
     Route: 058
     Dates: start: 201305, end: 201309
  3. METHOTREXATE [Concomitant]
     Indication: RHEUMATOID ARTHRITIS
     Dosage: 2 MG, UNK
     Dates: start: 2007
  4. METHOTREXATE [Concomitant]
     Indication: ARTHRITIS
  5. MAXXI D3 [Concomitant]
     Indication: VITAMIN SUPPLEMENTATION
     Dosage: UNK
     Dates: start: 201308
  6. LOSARTAN POTASSIUM [Concomitant]
     Indication: HYPERTENSION
     Dosage: UNK
     Dates: start: 2008

REACTIONS (9)
  - Device material issue [Unknown]
  - Injection site injury [Not Recovered/Not Resolved]
  - Product quality issue [Not Recovered/Not Resolved]
  - Joint injury [Unknown]
  - Hypertension [Unknown]
  - Off label use [Unknown]
  - Wrong technique in drug usage process [Unknown]
  - Injection site haematoma [Not Recovered/Not Resolved]
  - Injection site pain [Not Recovered/Not Resolved]
